FAERS Safety Report 5010375-0 (Version None)
Quarter: 2006Q2

REPORT INFORMATION
  Report Type: 
  Country: None (occurrence: None)
  Receive Date: 20060523
  Receipt Date: 20060520
  Transmission Date: 20061013
  Serious: Yes (Other)
  Sender: FDA-Public Use
  Company Number: 219547

PATIENT
  Age: 67 Year
  Sex: Female

DRUGS (1)
  1. AVASTIN [Suspect]
     Indication: OVARIAN CANCER
     Dates: start: 20050501

REACTIONS (2)
  - CATHETER RELATED INFECTION [None]
  - IMPAIRED HEALING [None]
